FAERS Safety Report 10149771 (Version 2)
Quarter: 2014Q2

REPORT INFORMATION
  Report Type: Spontaneous
  Country: US (occurrence: US)
  Receive Date: 20140502
  Receipt Date: 20140502
  Transmission Date: 20141212
  Serious: Yes (Other)
  Sender: FDA-Public Use
  Company Number: US-009507513-1202USA00425

PATIENT
  Sex: Male
  Weight: 83.45 kg

DRUGS (2)
  1. PROPECIA [Suspect]
     Indication: ALOPECIA
     Dosage: 1 MG, QD
     Route: 048
     Dates: start: 20050329, end: 20110406
  2. PROPECIA [Suspect]
     Indication: ANDROGENETIC ALOPECIA

REACTIONS (20)
  - Hearing impaired [Unknown]
  - Cognitive disorder [Not Recovered/Not Resolved]
  - Anxiety [Not Recovered/Not Resolved]
  - Attention deficit/hyperactivity disorder [Unknown]
  - Dysthymic disorder [Unknown]
  - Post-traumatic stress disorder [Unknown]
  - Obsessive-compulsive disorder [Unknown]
  - Anger [Unknown]
  - Stress [Unknown]
  - Melanocytic naevus [Unknown]
  - Fatigue [Unknown]
  - Tendonitis [Unknown]
  - Acute stress disorder [Unknown]
  - Cartilage injury [Unknown]
  - Sinusitis [Unknown]
  - Dizziness [Unknown]
  - Depression [Not Recovered/Not Resolved]
  - Sexual dysfunction [Not Recovered/Not Resolved]
  - Erectile dysfunction [Unknown]
  - Drug ineffective [Unknown]
